FAERS Safety Report 14140888 (Version 1)
Quarter: 2017Q4

REPORT INFORMATION
  Report Type: Spontaneous
  Country: DK (occurrence: DK)
  Receive Date: 20171030
  Receipt Date: 20171030
  Transmission Date: 20180321
  Serious: Yes (Other)
  Sender: FDA-Public Use
  Company Number: DK-ROCHE-2012097

PATIENT
  Age: 14 Year
  Sex: Female

DRUGS (4)
  1. FRISIUM [Suspect]
     Active Substance: CLOBAZAM
     Indication: EPILEPSY
     Route: 048
  2. RIVOTRIL [Suspect]
     Active Substance: CLONAZEPAM
     Indication: EPILEPSY
     Route: 065
  3. MIDAZOLAM [Concomitant]
     Active Substance: MIDAZOLAM HYDROCHLORIDE
     Indication: SEIZURE
     Route: 065
  4. PHENOBARBITAL. [Suspect]
     Active Substance: PHENOBARBITAL
     Indication: EPILEPSY
     Route: 065

REACTIONS (2)
  - Seizure [Unknown]
  - Drug administration error [Unknown]
